FAERS Safety Report 8064455-6 (Version None)
Quarter: 2012Q1

REPORT INFORMATION
  Report Type: 
  Country: None (occurrence: None)
  Receive Date: 20120123
  Receipt Date: 20120118
  Transmission Date: 20120608
  Serious: Yes (Life-Threatening)
  Sender: FDA-Public Use
  Company Number: PHEH2012US001697

PATIENT
  Sex: Female

DRUGS (2)
  1. ESTRADERM [Suspect]
     Route: 062
  2. ESTRADIOL [Suspect]

REACTIONS (1)
  - APPARENT DEATH [None]
